FAERS Safety Report 5324334-1 (Version None)
Quarter: 2007Q2

REPORT INFORMATION
  Report Type: 
  Country: None (occurrence: None)
  Receive Date: 20070509
  Receipt Date: 20070425
  Transmission Date: 20071010
  Serious: Yes (Other)
  Sender: FDA-Public Use
  Company Number: 6027293

PATIENT
  Age: 64 Year
  Sex: Female

DRUGS (1)
  1. ENALAPRIL MALEATE [Suspect]
     Indication: HYPERTENSION
     Dosage: 10 MG (10 MG, 1 D);

REACTIONS (3)
  - COUGH [None]
  - NASAL CONGESTION [None]
  - SLEEP APNOEA SYNDROME [None]
